FAERS Safety Report 18958247 (Version 2)
Quarter: 2021Q1

REPORT INFORMATION
  Report Type: Report from Study
  Country: PA (occurrence: PA)
  Receive Date: 20210302
  Receipt Date: 20210327
  Transmission Date: 20210420
  Serious: Yes (Other)
  Sender: FDA-Public Use
  Company Number: NVSC2021PA046524

PATIENT
  Sex: Female
  Weight: 53.52 kg

DRUGS (8)
  1. ZALDIAR [Concomitant]
     Active Substance: ACETAMINOPHEN\TRAMADOL HYDROCHLORIDE
     Indication: PRODUCT USED FOR UNKNOWN INDICATION
     Dosage: 37.5 MG
     Route: 065
  2. FULVESTRANT. [Suspect]
     Active Substance: FULVESTRANT
     Indication: PRODUCT USED FOR UNKNOWN INDICATION
     Dosage: 500 MG
     Route: 065
     Dates: start: 20200921
  3. ANASTROZOLE. [Suspect]
     Active Substance: ANASTROZOLE
     Indication: PRODUCT USED FOR UNKNOWN INDICATION
     Dosage: UNK (APPROXIMATELY IN 1997)
     Route: 065
  4. ANASTROZOLE. [Suspect]
     Active Substance: ANASTROZOLE
     Dosage: UNK
     Route: 065
     Dates: start: 2011, end: 202006
  5. GABAPENTIN. [Suspect]
     Active Substance: GABAPENTIN
     Indication: NEURALGIA
     Dosage: 75 MG
     Route: 065
     Dates: start: 202008
  6. FULVESTRANT. [Suspect]
     Active Substance: FULVESTRANT
     Dosage: UNK, QMO (21 SEP (YEAR UNSPECIFIED))
     Route: 065
  7. IRBESARTAN. [Suspect]
     Active Substance: IRBESARTAN
     Indication: PRODUCT USED FOR UNKNOWN INDICATION
     Dosage: 300 MG (APPROXIMATELY 2019)
     Route: 065
  8. ENANTYUM [Concomitant]
     Active Substance: DEXKETOPROFEN TROMETAMOL
     Indication: PRODUCT USED FOR UNKNOWN INDICATION
     Dosage: 25 MG
     Route: 065

REACTIONS (17)
  - Metastases to bone [Unknown]
  - Metastases to lung [Unknown]
  - White blood cell count decreased [Unknown]
  - Spinal flattening [Unknown]
  - Haemoglobin decreased [Unknown]
  - Neoplasm malignant [Unknown]
  - Carcinoembryonic antigen increased [Unknown]
  - Decreased immune responsiveness [Unknown]
  - Carbohydrate antigen 15-3 increased [Unknown]
  - Spinal stenosis [Unknown]
  - Pain [Unknown]
  - Tumour marker increased [Unknown]
  - Diarrhoea [Unknown]
  - Diabetes mellitus [Unknown]
  - Neuropathy peripheral [Unknown]
  - Intervertebral disc protrusion [Unknown]
  - Pelvic mass [Unknown]

NARRATIVE: CASE EVENT DATE: 2010
